FAERS Safety Report 20736286 (Version 3)
Quarter: 2022Q2

REPORT INFORMATION
  Report Type: Report from Study
  Country: CA (occurrence: CA)
  Receive Date: 20220421
  Receipt Date: 20220510
  Transmission Date: 20220721
  Serious: Yes (Hospitalization)
  Sender: FDA-Public Use
  Company Number: CA-Taiho Oncology Inc-EU-2022-01077

PATIENT
  Age: 75 Year
  Sex: Male
  Weight: 86.8 kg

DRUGS (1)
  1. LONSURF [Suspect]
     Active Substance: TIPIRACIL HYDROCHLORIDE\TRIFLURIDINE
     Indication: Colorectal cancer metastatic
     Dosage: DOSE, FREQUENCY AND CURRENT CYCLE UNKNOWN
     Route: 048
     Dates: start: 20210304, end: 202204

REACTIONS (2)
  - Haemoptysis [Recovered/Resolved]
  - Lung disorder [Recovered/Resolved]
